FAERS Safety Report 6161496-0 (Version None)
Quarter: 2009Q2

REPORT INFORMATION
  Report Type: 
  Country: None (occurrence: None)
  Receive Date: 20090421
  Receipt Date: 20090417
  Transmission Date: 20091009
  Serious: Yes (Death, Hospitalization)
  Sender: FDA-Public Use
  Company Number: PHHY2009NL14646

PATIENT
  Age: 66 Year
  Sex: Male

DRUGS (6)
  1. CYCLOSPORINE [Suspect]
     Indication: STEM CELL TRANSPLANT
     Dosage: UNK
  2. CYCLOSPORINE [Suspect]
     Indication: IMMUNOSUPPRESSION
  3. MYCOPHENOLATE MOFETIL [Suspect]
     Indication: STEM CELL TRANSPLANT
     Dosage: UNK
  4. MYCOPHENOLATE MOFETIL [Suspect]
     Indication: IMMUNOSUPPRESSION
  5. PREDNISONE [Suspect]
     Indication: STEM CELL TRANSPLANT
     Dosage: UNK
  6. PREDNISONE [Suspect]
     Indication: IMMUNOSUPPRESSION

REACTIONS (10)
  - ABDOMINAL SEPSIS [None]
  - BACTERAEMIA [None]
  - DYSPNOEA [None]
  - GRAFT VERSUS HOST DISEASE [None]
  - INFLUENZA [None]
  - LYMPHOPENIA [None]
  - NOSOCOMIAL INFECTION [None]
  - PNEUMONIA INFLUENZAL [None]
  - PYREXIA [None]
  - RESPIRATORY FAILURE [None]
